FAERS Safety Report 7995420-2 (Version None)
Quarter: 2011Q4

REPORT INFORMATION
  Report Type: 
  Country: None (occurrence: None)
  Receive Date: 20111220
  Receipt Date: 20111213
  Transmission Date: 20120403
  Serious: Yes (Life-Threatening, Hospitalization, Disabling, Other)
  Sender: FDA-Public Use
  Company Number: NL-UCBSA-047555

PATIENT
  Age: 42 Year
  Sex: Male

DRUGS (5)
  1. KEPPRA [Suspect]
  2. SPIRONOLACTONE [Concomitant]
  3. NEXIUM [Concomitant]
  4. PHENYTOIN SODIUM [Suspect]
  5. PROPRANOLOL [Concomitant]

REACTIONS (6)
  - MUSCLE SPASMS [None]
  - FOAMING AT MOUTH [None]
  - APHASIA [None]
  - ATRIAL FIBRILLATION [None]
  - MUSCLE DISORDER [None]
  - HYPERVENTILATION [None]
